FAERS Safety Report 8835251 (Version 1)
Quarter: 2012Q4

REPORT INFORMATION
  Report Type: Report from Study
  Country: CN (occurrence: CN)
  Receive Date: 20121011
  Receipt Date: 20121011
  Transmission Date: 20130627
  Serious: Yes (Other)
  Sender: FDA-Public Use
  Company Number: CN-ROCHE-1143873

PATIENT
  Sex: Female

DRUGS (2)
  1. PEGASYS [Suspect]
     Indication: HEPATITIS B
     Route: 058
     Dates: start: 20120421, end: 201209
  2. PEGASYS [Suspect]
     Route: 058
     Dates: start: 20120919

REACTIONS (2)
  - Platelet count decreased [Recovering/Resolving]
  - White blood cell count decreased [Recovering/Resolving]
